FAERS Safety Report 8334687 (Version 3)
Quarter: 2012Q4

REPORT INFORMATION
  Report Type: 
  Country: GB (occurrence: GB)
  Receive Date: 20120112
  Receipt Date: 20120903
  Transmission Date: 20130627
  Serious: Yes (Hospitalization, Other)
  Sender: FDA-Public Use
  Company Number: PHFR2012GB000543

PATIENT
  Age: 36 Year
  Sex: Male
  Weight: 97.5 kg

DRUGS (6)
  1. CLOZARIL [Suspect]
     Indication: SCHIZOPHRENIA
     Dosage: UNK UKN, UNK
     Route: 048
     Dates: start: 19991215
  2. CLOZARIL [Suspect]
     Dosage: 625 mg, QD
     Route: 048
  3. SIMVASTATIN [Concomitant]
     Indication: BLOOD CHOLESTEROL INCREASED
     Dosage: 40 mg, QD
     Route: 048
  4. PAROXETINE [Concomitant]
     Indication: DEPRESSION
     Dosage: 30 mg, UNK
     Route: 048
  5. HYOSCINE HYDROBROMIDE [Concomitant]
     Indication: SALIVARY HYPERSECRETION
     Dosage: 900 ug, QD
     Route: 048
  6. TAMSULOSIN [Concomitant]
     Indication: URINARY INCONTINENCE
     Dosage: 0.4 mg, QD

REACTIONS (6)
  - Urosepsis [Recovered/Resolved]
  - Platelet count decreased [Recovering/Resolving]
  - Metabolic syndrome [Not Recovered/Not Resolved]
  - Bladder diverticulum [Recovered/Resolved]
  - Nasopharyngitis [Unknown]
  - Body temperature increased [Unknown]
